FAERS Safety Report 18910446 (Version 1)
Quarter: 2021Q1

REPORT INFORMATION
  Report Type: Spontaneous
  Country: US (occurrence: US)
  Receive Date: 20210218
  Receipt Date: 20210218
  Transmission Date: 20210420
  Serious: Yes (Other)
  Sender: FDA-Public Use
  Company Number: None

PATIENT
  Age: 4 Month
  Sex: Female
  Weight: 5.4 kg

DRUGS (1)
  1. AVEENO BABY ECZEMA THERAPY NIGHTTIME BALM [Suspect]
     Active Substance: OATMEAL
     Indication: ECZEMA
     Route: 061

REACTIONS (3)
  - Burns first degree [None]
  - Crying [None]
  - Somnolence [None]

NARRATIVE: CASE EVENT DATE: 20210216
